FAERS Safety Report 7744055-5 (Version None)
Quarter: 2011Q3

REPORT INFORMATION
  Report Type: 
  Country: None (occurrence: None)
  Receive Date: 20110912
  Receipt Date: 20110901
  Transmission Date: 20111222
  Serious: Yes (Other)
  Sender: FDA-Public Use
  Company Number: GB-ASTRAZENECA-2011SE49814

PATIENT
  Age: 23870 Day
  Sex: Male
  Weight: 74.4 kg

DRUGS (4)
  1. CITALOPRAM HYDROBROMIDE [Concomitant]
  2. GABAPENTIN [Concomitant]
  3. OMEPRAZOLE [Suspect]
     Indication: PROPHYLAXIS AGAINST GASTROINTESTINAL ULCER
     Route: 048
     Dates: start: 20090801, end: 20110810
  4. DICLOFENAC [Suspect]
     Indication: ARTHRITIS
     Route: 048
     Dates: start: 20090801, end: 20110810

REACTIONS (2)
  - BLOOD COUNT ABNORMAL [None]
  - VITAMIN B12 DECREASED [None]
